FAERS Safety Report 25826178 (Version 6)
Quarter: 2025Q4

REPORT INFORMATION
  Report Type: Report from Study
  Country: US (occurrence: US)
  Receive Date: 20250919
  Receipt Date: 20251017
  Transmission Date: 20260117
  Serious: Yes (Hospitalization, Other)
  Sender: ABBVIE
  Company Number: US-ABBVIE-6453164

PATIENT
  Age: 45 Year
  Sex: Male

DRUGS (6)
  1. CREON [Suspect]
     Active Substance: PANCRELIPASE AMYLASE\PANCRELIPASE LIPASE\PANCRELIPASE PROTEASE
     Indication: Pancreatic failure
     Dosage: LAST ADMIN DATE: AUG 2025
     Route: 048
     Dates: start: 20250805
  2. CREON [Suspect]
     Active Substance: PANCRELIPASE AMYLASE\PANCRELIPASE LIPASE\PANCRELIPASE PROTEASE
     Indication: Pancreatic failure
     Dosage: LAST ADMIN DATE: AUG 2025
     Route: 048
     Dates: start: 20250812
  3. CREON [Suspect]
     Active Substance: PANCRELIPASE AMYLASE\PANCRELIPASE LIPASE\PANCRELIPASE PROTEASE
     Indication: Pancreatic failure
     Dosage: LAST ADMIN DATE: AUG 2025
     Route: 048
     Dates: start: 20250817
  4. CREON [Suspect]
     Active Substance: PANCRELIPASE AMYLASE\PANCRELIPASE LIPASE\PANCRELIPASE PROTEASE
     Indication: Pancreatic failure
     Route: 048
     Dates: start: 20250919
  5. CREON [Suspect]
     Active Substance: PANCRELIPASE AMYLASE\PANCRELIPASE LIPASE\PANCRELIPASE PROTEASE
     Indication: Pancreatic failure
     Dosage: LAST ADMIN DATE 2025
     Route: 048
     Dates: start: 20250623
  6. TYLENOL [Suspect]
     Active Substance: ACETAMINOPHEN
     Indication: Product used for unknown indication
     Route: 065

REACTIONS (36)
  - Cardiac disorder [Unknown]
  - Fatigue [Unknown]
  - Product administration error [Unknown]
  - Swelling face [Unknown]
  - Pancreatitis chronic [Not Recovered/Not Resolved]
  - Tremor [Unknown]
  - Vomiting [Recovered/Resolved]
  - Gastric ulcer [Not Recovered/Not Resolved]
  - Thinking abnormal [Unknown]
  - Gait inability [Unknown]
  - Skin infection [Unknown]
  - Mental disorder [Not Recovered/Not Resolved]
  - Diarrhoea haemorrhagic [Not Recovered/Not Resolved]
  - Dyspepsia [Unknown]
  - Fluid intake reduced [Unknown]
  - Malaise [Not Recovered/Not Resolved]
  - Anaemia [Unknown]
  - Hypophagia [Recovered/Resolved]
  - Pancreatic carcinoma [Unknown]
  - Asthenia [Unknown]
  - Enteral nutrition [Not Recovered/Not Resolved]
  - Illness [Unknown]
  - Fear [Unknown]
  - Vein disorder [Unknown]
  - Malnutrition [Unknown]
  - Dehydration [Unknown]
  - Gastrointestinal haemorrhage [Unknown]
  - Dyspepsia [Unknown]
  - Feeling abnormal [Unknown]
  - Pancreatic failure [Not Recovered/Not Resolved]
  - Vomiting [Unknown]
  - Pain [Unknown]
  - Rash [Not Recovered/Not Resolved]
  - Scab [Not Recovered/Not Resolved]
  - Pruritus [Not Recovered/Not Resolved]
  - Weight decreased [Not Recovered/Not Resolved]

NARRATIVE: CASE EVENT DATE: 20250101
